FAERS Safety Report 11793671 (Version 1)
Quarter: 2015Q4

REPORT INFORMATION
  Report Type: Report from Study
  Country: US (occurrence: US)
  Receive Date: 20151202
  Receipt Date: 20151202
  Transmission Date: 20160305
  Serious: Yes (Hospitalization)
  Sender: FDA-Public Use
  Company Number: US-BIOGENIDEC-2015BI157722

PATIENT
  Age: 54 Year
  Sex: Female

DRUGS (8)
  1. CALCIUM GLUCONATE. [Concomitant]
     Active Substance: CALCIUM GLUCONATE
  2. BIOTIN [Concomitant]
     Active Substance: BIOTIN
  3. VITAMIN C [Concomitant]
     Active Substance: ASCORBIC ACID
  4. VITAMIN D [Concomitant]
     Active Substance: CHOLECALCIFEROL
  5. LYRICA [Concomitant]
     Active Substance: PREGABALIN
  6. VITAMIN B12 [Concomitant]
     Active Substance: CYANOCOBALAMIN
  7. ATENOLOL. [Concomitant]
     Active Substance: ATENOLOL
  8. TECFIDERA [Suspect]
     Active Substance: DIMETHYL FUMARATE
     Indication: MULTIPLE SCLEROSIS
     Route: 048
     Dates: start: 201408

REACTIONS (3)
  - Urinary tract infection [Unknown]
  - Wound infection [Unknown]
  - Sepsis [Unknown]
